FAERS Safety Report 8976528 (Version 1)
Quarter: 2012Q4

REPORT INFORMATION
  Report Type: 
  Country: US (occurrence: US)
  Receive Date: 20121219
  Receipt Date: 20121219
  Transmission Date: 20130627
  Serious: No
  Sender: FDA-Public Use
  Company Number: US-AMGEN-USASP2012061747

PATIENT
  Age: 63 Year
  Sex: Female

DRUGS (10)
  1. PROLIA [Suspect]
     Dosage: UNK
     Dates: start: 20100927
  2. PAROXETINE [Concomitant]
     Dosage: 20 mg, UNK
  3. VITAMIN D /00107901/ [Concomitant]
     Dosage: 50000 unit, UNK
  4. FOLIC ACID [Concomitant]
     Dosage: 1 mg, UNK
  5. MELOXICAM [Concomitant]
     Dosage: 15 mg, UNK
  6. LORAZEPAM [Concomitant]
     Dosage: 1 mg, UNK
  7. PRILOSEC                           /00661201/ [Concomitant]
     Dosage: 20 mg, UNK
  8. PLAQUENIL                          /00072603/ [Concomitant]
     Dosage: 200 mg, UNK
  9. VICODIN [Concomitant]
  10. TRAMADOL [Concomitant]

REACTIONS (1)
  - Pain in jaw [Recovered/Resolved]
